FAERS Safety Report 9786965 (Version 1)
Quarter: 2013Q4

REPORT INFORMATION
  Report Type: Spontaneous
  Country: US (occurrence: US)
  Receive Date: 20131227
  Receipt Date: 20131227
  Transmission Date: 20140711
  Serious: No
  Sender: FDA-Public Use
  Company Number: US-GILEAD-2013-0090787

PATIENT
  Sex: Female

DRUGS (3)
  1. LETAIRIS [Suspect]
     Indication: PRODUCT USED FOR UNKNOWN INDICATION
     Dosage: 10 MG, QD
     Route: 048
     Dates: start: 20090719
  2. TYVASO [Concomitant]
  3. REVATIO [Concomitant]

REACTIONS (4)
  - Cough [Unknown]
  - Inflammation [Unknown]
  - Nasopharyngitis [Unknown]
  - Nasal congestion [Unknown]
